FAERS Safety Report 20249020 (Version 5)
Quarter: 2022Q1

REPORT INFORMATION
  Report Type: Spontaneous
  Country: ES (occurrence: ES)
  Receive Date: 20211229
  Receipt Date: 20220307
  Transmission Date: 20220423
  Serious: Yes (Hospitalization)
  Sender: FDA-Public Use
  Company Number: ES-CELGENE-ESP-20211206052

PATIENT
  Age: 66 Year
  Sex: Female
  Weight: 66.8 kg

DRUGS (19)
  1. LENALIDOMIDE [Suspect]
     Active Substance: LENALIDOMIDE
     Indication: Follicular lymphoma
     Dosage: 40 MILLIGRAM
     Route: 048
     Dates: start: 20211118, end: 20211208
  2. EPCORITAMAB [Suspect]
     Active Substance: EPCORITAMAB
     Indication: Follicular lymphoma
     Dosage: .16 MILLIGRAM
     Route: 058
     Dates: start: 20211118, end: 20211118
  3. EPCORITAMAB [Suspect]
     Active Substance: EPCORITAMAB
     Dosage: .8 MILLIGRAM
     Route: 058
     Dates: start: 20211125, end: 20211125
  4. EPCORITAMAB [Suspect]
     Active Substance: EPCORITAMAB
     Dosage: 48 MILLIGRAM
     Route: 058
     Dates: start: 20211202, end: 20211202
  5. EPCORITAMAB [Suspect]
     Active Substance: EPCORITAMAB
     Dosage: .8 MILLIGRAM
     Route: 058
  6. EPCORITAMAB [Suspect]
     Active Substance: EPCORITAMAB
     Dosage: 48 MILLIGRAM
     Route: 058
     Dates: start: 20211202
  7. RITUXIMAB [Suspect]
     Active Substance: RITUXIMAB
     Indication: Follicular lymphoma
     Dosage: 375 MILLIGRAM/SQ. METER
     Route: 041
     Dates: start: 20211118, end: 20211202
  8. DEXCHLORPHENIRAMINE [Concomitant]
     Active Substance: DEXCHLORPHENIRAMINE
     Indication: Product used for unknown indication
     Dosage: 5 MILLIGRAM
     Route: 041
     Dates: start: 20211118, end: 20211202
  9. ACETAMINOPHEN [Concomitant]
     Active Substance: ACETAMINOPHEN
     Indication: Product used for unknown indication
     Route: 041
     Dates: start: 20211118, end: 20211202
  10. METHYLPREDNISOLONE [Concomitant]
     Active Substance: METHYLPREDNISOLONE
     Indication: Product used for unknown indication
     Dosage: 100 MILLIGRAM
     Route: 065
     Dates: start: 20211118, end: 20211121
  11. METHYLPREDNISOLONE [Concomitant]
     Active Substance: METHYLPREDNISOLONE
     Dosage: 100 MILLIGRAM
     Route: 065
     Dates: start: 20211202, end: 20211205
  12. ALLOPURINOL [Concomitant]
     Active Substance: ALLOPURINOL
     Indication: Product used for unknown indication
     Route: 065
     Dates: start: 20211116
  13. BEMIPARIN [Concomitant]
     Active Substance: BEMIPARIN
     Indication: Product used for unknown indication
     Route: 065
     Dates: start: 20211211
  14. CALCIUM CARBONATE\CHOLECALCIFEROL [Concomitant]
     Active Substance: CALCIUM CARBONATE\CHOLECALCIFEROL
     Indication: Product used for unknown indication
     Route: 048
     Dates: start: 2016
  15. CHOLECALCIFEROL [Concomitant]
     Active Substance: CHOLECALCIFEROL
     Indication: Product used for unknown indication
     Route: 065
  16. EZETIMIBE [Concomitant]
     Active Substance: EZETIMIBE
     Indication: Product used for unknown indication
     Route: 065
     Dates: start: 2013
  17. OMEPRAZOLE [Concomitant]
     Active Substance: OMEPRAZOLE
     Indication: Product used for unknown indication
     Route: 065
     Dates: start: 20211116
  18. SULFAMETHOXAZOLE\TRIMETHOPRIM [Concomitant]
     Active Substance: SULFAMETHOXAZOLE\TRIMETHOPRIM
     Indication: Product used for unknown indication
     Route: 065
     Dates: start: 20211116
  19. PREDNISONE [Concomitant]
     Active Substance: PREDNISONE
     Indication: Product used for unknown indication
     Route: 065
     Dates: start: 20211202, end: 20211205

REACTIONS (1)
  - Cytokine release syndrome [Recovered/Resolved]

NARRATIVE: CASE EVENT DATE: 20211204
